FAERS Safety Report 17597086 (Version 1)
Quarter: 2020Q1

REPORT INFORMATION
  Report Type: Spontaneous
  Country: BR (occurrence: BR)
  Receive Date: 20200330
  Receipt Date: 20200330
  Transmission Date: 20200409
  Serious: Yes (Other)
  Sender: FDA-Public Use
  Company Number: BR-AMGEN-BRASP2020046077

PATIENT
  Age: 44 Year
  Sex: Female
  Weight: 81 kg

DRUGS (2)
  1. ENBREL [Suspect]
     Active Substance: ETANERCEPT
     Dosage: 50 MILLIGRAM, WEEKLY
     Route: 058
     Dates: start: 202001
  2. ENBREL [Suspect]
     Active Substance: ETANERCEPT
     Indication: RHEUMATOID ARTHRITIS
     Dosage: 50 MILLIGRAM, WEEKLY
     Route: 058
     Dates: start: 201710, end: 201911

REACTIONS (6)
  - Dyspnoea [Recovered/Resolved]
  - Gait disturbance [Recovered/Resolved]
  - Pneumonia [Recovered/Resolved]
  - Pain [Recovered/Resolved]
  - Lung disorder [Recovered/Resolved]
  - Weight increased [Not Recovered/Not Resolved]
